FAERS Safety Report 24056984 (Version 3)
Quarter: 2024Q3

REPORT INFORMATION
  Report Type: Report from Study
  Country: US (occurrence: US)
  Receive Date: 20240706
  Receipt Date: 20240830
  Transmission Date: 20241017
  Serious: No
  Sender: SANOFI AVENTIS
  Company Number: US-SA-SAC20220901000899

PATIENT
  Age: 41 Year
  Sex: Female

DRUGS (4)
  1. CEREZYME [Suspect]
     Active Substance: IMIGLUCERASE
     Indication: Gaucher^s disease
     Dosage: 3200 (UNIT NOT REPORTED), QOW
     Route: 042
     Dates: start: 199411
  2. CEREZYME [Suspect]
     Active Substance: IMIGLUCERASE
     Dosage: 3200 IU, QOW
     Route: 042
     Dates: start: 20160229
  3. ESTRADIOL VALERATE [Concomitant]
     Active Substance: ESTRADIOL VALERATE
     Dosage: UNK
  4. PROGESTERONE [Concomitant]
     Active Substance: PROGESTERONE
     Dosage: UNK

REACTIONS (1)
  - Maternal exposure during pregnancy [Unknown]

NARRATIVE: CASE EVENT DATE: 20240101
